FAERS Safety Report 23513083 (Version 1)
Quarter: 2024Q1

REPORT INFORMATION
  Report Type: Spontaneous
  Country: GB (occurrence: None)
  Receive Date: 20240212
  Receipt Date: 20240212
  Transmission Date: 20240410
  Serious: Yes (Other)
  Sender: FDA-Public Use
  Company Number: 2024A035292

PATIENT
  Age: 61 Year
  Sex: Male

DRUGS (1)
  1. OLAPARIB [Suspect]
     Active Substance: OLAPARIB
     Indication: Hormone-refractory prostate cancer
     Dosage: 300 MILLIGRAM, FREQ: BID
     Route: 048
     Dates: start: 202306, end: 202309

REACTIONS (5)
  - Malignant neoplasm progression [Unknown]
  - Thrombocytopenia [Unknown]
  - Bone pain [Unknown]
  - Anaemia [Unknown]
  - Fatigue [Unknown]

NARRATIVE: CASE EVENT DATE: 20230101
